FAERS Safety Report 7286269-7 (Version None)
Quarter: 2011Q1

REPORT INFORMATION
  Report Type: 
  Country: None (occurrence: None)
  Receive Date: 20110210
  Receipt Date: 20110204
  Transmission Date: 20110831
  Serious: Yes (Hospitalization)
  Sender: FDA-Public Use
  Company Number: PHHO2011TH01231

PATIENT
  Sex: Female
  Weight: 37.5 kg

DRUGS (5)
  1. ENALAPRIL MALEATE [Suspect]
     Indication: CARDIAC FAILURE
     Dosage: UNK
     Dates: start: 20091117, end: 20100105
  2. BLINDED NO TREATMENT RECEIVED [Suspect]
     Dosage: CODE NOT BROKEN
     Route: 048
     Dates: start: 20100106
  3. ALISKIREN [Suspect]
     Indication: CARDIAC FAILURE
     Dosage: UNK
     Route: 048
     Dates: start: 20091215, end: 20100105
  4. BLINDED ALISKIREN [Suspect]
     Dosage: CODE NOT BROKEN
     Route: 048
     Dates: start: 20100106
  5. ENALAPRIL MALEATE [Suspect]
     Dosage: CODE NOT BROKEN
     Route: 048
     Dates: start: 20100106

REACTIONS (4)
  - HYPOPHAGIA [None]
  - ACUTE PRERENAL FAILURE [None]
  - TRACHEOBRONCHITIS [None]
  - PYREXIA [None]
